FAERS Safety Report 6543116-6 (Version None)
Quarter: 2010Q1

REPORT INFORMATION
  Report Type: 
  Country: None (occurrence: None)
  Receive Date: 20100120
  Receipt Date: 20100111
  Transmission Date: 20100710
  Serious: Yes (Hospitalization, Other)
  Sender: FDA-Public Use
  Company Number: PHHY2009DE53437

PATIENT
  Age: 66 Year
  Sex: Female
  Weight: 82 kg

DRUGS (7)
  1. DICLOFENAC SODIUM [Suspect]
     Indication: BACK PAIN
     Dosage: SINCE 10 YEARS
     Route: 030
  2. LAMPRENE [Concomitant]
     Indication: SYSTEMIC LUPUS ERYTHEMATOSUS
     Dosage: UNK
     Dates: start: 20080101, end: 20090701
  3. CORTISONE [Concomitant]
     Indication: SYSTEMIC LUPUS ERYTHEMATOSUS
     Dosage: UNK
  4. HUMALOG [Concomitant]
     Indication: DIABETES MELLITUS
     Dosage: UNK
     Dates: start: 20080101
  5. ENAHEXAL COMP. [Concomitant]
     Dosage: UNK
     Route: 048
     Dates: start: 20080101
  6. SALBUHEXAL [Concomitant]
     Indication: SYSTEMIC LUPUS ERYTHEMATOSUS
     Dosage: UNK
     Route: 048
     Dates: start: 20080101
  7. ZOLPIDEM [Concomitant]
     Dosage: UNK
     Route: 048
     Dates: start: 20080101

REACTIONS (3)
  - ANAPHYLACTIC SHOCK [None]
  - SURGERY [None]
  - TYPE IV HYPERSENSITIVITY REACTION [None]
